FAERS Safety Report 13781246 (Version 1)
Quarter: 2017Q3

REPORT INFORMATION
  Report Type: Spontaneous
  Country: US (occurrence: US)
  Receive Date: 20170723
  Receipt Date: 20170723
  Transmission Date: 20171127
  Serious: Yes (Disabling)
  Sender: FDA-Public Use
  Company Number: None

PATIENT
  Age: 51 Year
  Sex: Female
  Weight: 74.25 kg

DRUGS (4)
  1. DIAZEPAM. [Suspect]
     Active Substance: DIAZEPAM
     Indication: ANXIETY
     Route: 048
     Dates: start: 20080415, end: 20120515
  2. NORTRIPTYLINE [Concomitant]
     Active Substance: NORTRIPTYLINE
  3. OPANA ER [Concomitant]
     Active Substance: OXYMORPHONE HYDROCHLORIDE
  4. LUNESTA [Concomitant]
     Active Substance: ESZOPICLONE

REACTIONS (22)
  - Nerve injury [None]
  - Insomnia [None]
  - Hydrophobia [None]
  - Suicidal ideation [None]
  - Hallucination [None]
  - Photophobia [None]
  - Sneezing [None]
  - Flushing [None]
  - Withdrawal syndrome [None]
  - Muscle spasms [None]
  - Agoraphobia [None]
  - Palpitations [None]
  - Pruritus [None]
  - Rash [None]
  - Body dysmorphic disorder [None]
  - Muscle twitching [None]
  - Headache [None]
  - Hallucination, auditory [None]
  - Muscle contractions involuntary [None]
  - Akathisia [None]
  - Tinnitus [None]
  - Alopecia [None]

NARRATIVE: CASE EVENT DATE: 20120515
